FAERS Safety Report 25616560 (Version 1)
Quarter: 2025Q3

REPORT INFORMATION
  Report Type: Spontaneous
  Country: GB (occurrence: GB)
  Receive Date: 20250729
  Receipt Date: 20250729
  Transmission Date: 20251020
  Serious: Yes (Hospitalization, Congenital Anomaly, Other)
  Sender: AUROBINDO
  Company Number: GB-MHRA-MED-202507171308475640-TJHQZ

PATIENT
  Age: 14 Day
  Sex: Male

DRUGS (1)
  1. VENLAFAXINE [Suspect]
     Active Substance: VENLAFAXINE HYDROCHLORIDE
     Indication: Product used for unknown indication
     Route: 065

REACTIONS (2)
  - Auditory disorder [Not Recovered/Not Resolved]
  - Newborn persistent pulmonary hypertension [Recovered/Resolved]
